FAERS Safety Report 4686917-1 (Version None)
Quarter: 2005Q2

REPORT INFORMATION
  Report Type: 
  Country: None (occurrence: None)
  Receive Date: 20050608
  Receipt Date: 20050526
  Transmission Date: 20051028
  Serious: Yes (Other)
  Sender: FDA-Public Use
  Company Number: GBWYE698626MAY05

PATIENT
  Age: 55 Year
  Sex: Female

DRUGS (3)
  1. ADVIL [Suspect]
  2. NYTOL (METHAPYRILENE HYDROCHLORIDE/SALICYLAMIDE,, 0) [Suspect]
  3. PAROXETINE HCL [Suspect]
     Dosage: 28 TABLETS

REACTIONS (13)
  - AGGRESSION [None]
  - ANXIETY [None]
  - DEPRESSION [None]
  - DISTURBANCE IN ATTENTION [None]
  - INSOMNIA [None]
  - INTENTIONAL MISUSE [None]
  - MEMORY IMPAIRMENT [None]
  - MENTAL DISORDER [None]
  - MULTIPLE DRUG OVERDOSE [None]
  - PANIC ATTACK [None]
  - SELF ESTEEM DECREASED [None]
  - SUICIDAL IDEATION [None]
  - TEARFULNESS [None]
